FAERS Safety Report 5672490-8 (Version None)
Quarter: 2008Q1

REPORT INFORMATION
  Report Type: 
  Country: None (occurrence: None)
  Receive Date: 20080319
  Receipt Date: 20080314
  Transmission Date: 20080703
  Serious: Yes (Hospitalization, Other)
  Sender: FDA-Public Use
  Company Number: US-BAYER-200813135NA

PATIENT
  Age: 29 Year
  Sex: Female
  Weight: 48 kg

DRUGS (1)
  1. MIRENA [Suspect]
     Indication: CONTRACEPTION
     Route: 015
     Dates: start: 20041119, end: 20080109

REACTIONS (4)
  - MENSTRUATION IRREGULAR [None]
  - PELVIC PERITONEAL ADHESIONS [None]
  - UTERINE HAEMORRHAGE [None]
  - UTERINE RUPTURE [None]
